FAERS Safety Report 20433302 (Version 2)
Quarter: 2022Q1

REPORT INFORMATION
  Report Type: Spontaneous
  Country: CH (occurrence: CH)
  Receive Date: 20220205
  Receipt Date: 20220301
  Transmission Date: 20220424
  Serious: Yes (Hospitalization, Other)
  Sender: FDA-Public Use
  Company Number: CH-SA-SAC20220129000122

PATIENT
  Age: 78 Year
  Sex: Female
  Weight: 111 kg

DRUGS (7)
  1. ENOXAPARIN SODIUM [Suspect]
     Active Substance: ENOXAPARIN SODIUM
     Indication: Atrial fibrillation
     Dosage: 100 MG, BID
     Dates: start: 20210803
  2. VITAMIN D NOS [Concomitant]
     Active Substance: VITAMIN D NOS
     Indication: Osteoporosis
     Dosage: 10 GTT DROPS, QD
  3. PANTOPRAZOLE SODIUM [Concomitant]
     Active Substance: PANTOPRAZOLE SODIUM
     Indication: Gastrointestinal disorder
     Dosage: 1 DF, QD
  4. IRBESARTAN [Concomitant]
     Active Substance: IRBESARTAN
     Indication: Blood pressure measurement
     Dosage: 1 DF, QD
  5. VESICARE [Concomitant]
     Active Substance: SOLIFENACIN SUCCINATE
     Indication: Incontinence
     Dosage: 1 DF, QD
  6. NOVALGIN (METAMIZOLE SODIUM) [Concomitant]
     Active Substance: METAMIZOLE SODIUM
     Indication: Pain
     Dosage: 1-8/DAY AS NEEDED, PRN
  7. DAFALGAN [Concomitant]
     Active Substance: ACETAMINOPHEN
     Indication: Pain
     Dosage: 1-4/DAY AS NEEDED, PRN

REACTIONS (4)
  - Shock haemorrhagic [Recovered/Resolved]
  - Groin pain [Recovered/Resolved]
  - Vascular occlusion [Recovered/Resolved]
  - Retroperitoneal haematoma [Recovered/Resolved]

NARRATIVE: CASE EVENT DATE: 20210801
